FAERS Safety Report 18781587 (Version 1)
Quarter: 2021Q1

REPORT INFORMATION
  Report Type: Spontaneous
  Country: QZ (occurrence: QZ)
  Receive Date: 20210125
  Receipt Date: 20210125
  Transmission Date: 20210419
  Serious: Yes (Other)
  Sender: FDA-Public Use
  Company Number: None

PATIENT
  Age: 19 Year
  Sex: Male
  Weight: 70.9 kg

DRUGS (3)
  1. DIPHENHYDRAMINE. [Concomitant]
     Active Substance: DIPHENHYDRAMINE
     Dates: start: 20210121, end: 20210121
  2. HYDROCORTISONE 100 MG [Concomitant]
     Dates: start: 20210121, end: 20210121
  3. STELARA [Suspect]
     Active Substance: USTEKINUMAB
     Indication: COLITIS
     Dosage: ?          OTHER FREQUENCY:IV INFUSION;?
     Route: 041
     Dates: start: 20210121, end: 20210121

REACTIONS (3)
  - Chest discomfort [None]
  - Cough [None]
  - Flushing [None]

NARRATIVE: CASE EVENT DATE: 20210121
